FAERS Safety Report 23011088 (Version 2)
Quarter: 2023Q4

REPORT INFORMATION
  Report Type: Other
  Country: FR (occurrence: None)
  Receive Date: 20230929
  Receipt Date: 20231019
  Transmission Date: 20240110
  Serious: Yes (Other)
  Sender: FDA-Public Use
  Company Number: FR-AMGEN-FRASP2023161320

PATIENT
  Age: 37 Year
  Sex: Male

DRUGS (5)
  1. ATEZOLIZUMAB [Suspect]
     Active Substance: ATEZOLIZUMAB
     Indication: Hepatocellular carcinoma
     Dosage: 1200 MILLIGRAM, Q3WK
     Route: 065
  2. BEVACIZUMAB [Suspect]
     Active Substance: BEVACIZUMAB
     Indication: Hepatocellular carcinoma
     Dosage: 15 MILLIGRAM PER KILOGRAM, Q3WK
     Route: 065
  3. SORAFENIB [Concomitant]
     Active Substance: SORAFENIB
  4. LENVATINIB [Concomitant]
     Active Substance: LENVATINIB
  5. CABOZANTINIB [Concomitant]
     Active Substance: CABOZANTINIB

REACTIONS (6)
  - Hepatocellular carcinoma [Unknown]
  - Dermatitis acneiform [Unknown]
  - Off label use [Unknown]
  - Therapy non-responder [Unknown]
  - Gene mutation [Unknown]
  - Anaemia [Unknown]
